FAERS Safety Report 5617263-7 (Version None)
Quarter: 2008Q1

REPORT INFORMATION
  Report Type: 
  Country: None (occurrence: None)
  Receive Date: 20080207
  Receipt Date: 20070614
  Transmission Date: 20080703
  Serious: No
  Sender: FDA-Public Use
  Company Number: A0657250A

PATIENT
  Sex: Male

DRUGS (1)
  1. PAXIL [Suspect]
     Indication: DRUG USE FOR UNKNOWN INDICATION
     Route: 048

REACTIONS (4)
  - ANXIETY [None]
  - NONSPECIFIC REACTION [None]
  - PAIN [None]
  - WITHDRAWAL SYNDROME [None]
